FAERS Safety Report 17981274 (Version 1)
Quarter: 2020Q3

REPORT INFORMATION
  Report Type: Spontaneous
  Country: KR (occurrence: KR)
  Receive Date: 20200705
  Receipt Date: 20200705
  Transmission Date: 20201103
  Serious: Yes (Other)
  Sender: FDA-Public Use
  Company Number: NVSC2020KR189334

PATIENT

DRUGS (1)
  1. PREDNISOLONE. [Suspect]
     Active Substance: PREDNISOLONE
     Indication: RASH
     Dosage: 24 MG, QD
     Route: 065

REACTIONS (3)
  - Drug ineffective for unapproved indication [Unknown]
  - Pneumocystis jirovecii pneumonia [Unknown]
  - Drug intolerance [Unknown]
